FAERS Safety Report 14874559 (Version 1)
Quarter: 2018Q2

REPORT INFORMATION
  Report Type: Spontaneous
  Country: PL (occurrence: PL)
  Receive Date: 20180510
  Receipt Date: 20180510
  Transmission Date: 20180711
  Serious: Yes (Life-Threatening, Other)
  Sender: FDA-Public Use
  Company Number: PL-SA-2018SA130121

PATIENT
  Age: 62 Year
  Sex: Male
  Weight: 137 kg

DRUGS (5)
  1. SOTALOL. [Concomitant]
     Active Substance: SOTALOL
  2. WARFARIN [Concomitant]
     Active Substance: WARFARIN
  3. ZOLPIDEM [Suspect]
     Active Substance: ZOLPIDEM\ZOLPIDEM TARTRATE
     Route: 048
  4. GINKGO BILOBA EXTRACT [Interacting]
     Active Substance: GINKGO
     Route: 065
  5. SERTRALINE [Interacting]
     Active Substance: SERTRALINE HYDROCHLORIDE
     Route: 065

REACTIONS (2)
  - Ischaemic cerebral infarction [Not Recovered/Not Resolved]
  - Drug interaction [Unknown]
